FAERS Safety Report 7397477-9 (Version None)
Quarter: 2011Q1

REPORT INFORMATION
  Report Type: 
  Country: None (occurrence: None)
  Receive Date: 20110328
  Receipt Date: 20110321
  Transmission Date: 20110831
  Serious: Yes (Hospitalization, Disabling, Other)
  Sender: FDA-Public Use
  Company Number: 2005-136056-NL

PATIENT
  Age: 36 Year
  Sex: Female
  Weight: 72.6 kg

DRUGS (7)
  1. ADVAIR DISKUS 100/50 [Concomitant]
  2. ALBUTEROL [Concomitant]
  3. HYDROCODONE BITARTRATE AND ACETAMINOPHEN [Concomitant]
  4. PROMETHAZINE [Concomitant]
  5. NUVARING [Suspect]
     Indication: ENDOMETRIOSIS
     Dosage: VAG
     Route: 067
     Dates: start: 20040901, end: 20051118
  6. ZYRTEC [Concomitant]
  7. LORTAB [Concomitant]

REACTIONS (46)
  - GAIT DISTURBANCE [None]
  - FIBROUS DYSPLASIA OF BONE [None]
  - BRONCHITIS [None]
  - UPPER RESPIRATORY TRACT INFECTION [None]
  - TONSILLITIS [None]
  - NEURILEMMOMA [None]
  - CHONDROSARCOMA [None]
  - ENDOMETRIAL DISORDER [None]
  - ENDOMETRIOSIS [None]
  - EYE DISORDER [None]
  - OVARIAN CYST [None]
  - LARYNGITIS [None]
  - LENTIGO [None]
  - DEEP VEIN THROMBOSIS [None]
  - ACNE [None]
  - BACK PAIN [None]
  - CYST [None]
  - PNEUMONIA [None]
  - NECK PAIN [None]
  - MILIA [None]
  - SEBORRHOEIC KERATOSIS [None]
  - NEPHROLITHIASIS [None]
  - HAEMATURIA [None]
  - UTERINE POLYP [None]
  - DYSMENORRHOEA [None]
  - SINUSITIS [None]
  - PALPITATIONS [None]
  - BREAST PAIN [None]
  - BREAST ENLARGEMENT [None]
  - COLITIS [None]
  - MITRAL VALVE PROLAPSE [None]
  - UROBILINOGEN URINE INCREASED [None]
  - HYPERCOAGULATION [None]
  - FIBROUS HISTIOCYTOMA [None]
  - SKIN PAPILLOMA [None]
  - MENSTRUATION DELAYED [None]
  - MENOMETRORRHAGIA [None]
  - NEUROPATHY PERIPHERAL [None]
  - PULMONARY EMBOLISM [None]
  - HEADACHE [None]
  - WEIGHT DECREASED [None]
  - ACROCHORDON [None]
  - LEUKOCYTOSIS [None]
  - NEUROFIBROMA [None]
  - RASH [None]
  - SCAR [None]
